FAERS Safety Report 9564566 (Version 5)
Quarter: 2016Q3

REPORT INFORMATION
  Report Type: Spontaneous
  Country: US (occurrence: US)
  Receive Date: 20130930
  Receipt Date: 20160912
  Transmission Date: 20161109
  Serious: Yes (Other)
  Sender: FDA-Public Use
  Company Number: US-PFIZER INC-2013194497

PATIENT
  Age: 45 Year
  Sex: Female

DRUGS (14)
  1. ZOLOFT [Suspect]
     Active Substance: SERTRALINE HYDROCHLORIDE
     Dosage: 100 MG, DAILY
     Dates: start: 20110512
  2. CLARITIN [Concomitant]
     Active Substance: LORATADINE
     Dosage: 10 MG, 1X/DAY
     Route: 048
     Dates: start: 20110512
  3. OXCARBAZEPINE. [Concomitant]
     Active Substance: OXCARBAZEPINE
     Dosage: 300 MG, 2X/DAY
     Dates: start: 20110525, end: 20120710
  4. LYRICA [Concomitant]
     Active Substance: PREGABALIN
     Dosage: 150 MG, 2X/DAY
     Route: 048
  5. CARBAMAZEPINE. [Concomitant]
     Active Substance: CARBAMAZEPINE
     Dosage: 200 MG, 2X/DAY
     Dates: start: 20110512, end: 20110609
  6. LYRICA [Concomitant]
     Active Substance: PREGABALIN
     Dosage: 50 MG, 2X/DAY
     Route: 048
     Dates: start: 20120823, end: 20130520
  7. TURMERIC [Concomitant]
     Active Substance: TURMERIC
     Dosage: USED AS DIRECTED BY MISCELLANEOUS ROUTE
  8. OXCARBAZEPINE. [Concomitant]
     Active Substance: OXCARBAZEPINE
     Dosage: 300 MG, 2X/DAY (600 MG 1/2 TABLET TWICE DAILY)
     Dates: start: 20120711
  9. VIMPAT [Concomitant]
     Active Substance: LACOSAMIDE
     Dosage: 200 MG, 2X/DAY
     Dates: start: 20111103, end: 20120823
  10. MULTIVITAMINS [Concomitant]
     Active Substance: VITAMINS
     Dosage: 1 DF, DAILY
     Route: 048
     Dates: start: 20110512
  11. ESCITALOPRAM OXALATE. [Concomitant]
     Active Substance: ESCITALOPRAM OXALATE
     Dosage: 10 MG, DAILY
     Dates: start: 20111103, end: 20120823
  12. LYRICA [Concomitant]
     Active Substance: PREGABALIN
     Dosage: 100 MG, 2X/DAY
     Route: 048
     Dates: start: 20130521
  13. ADVIL, MOTRIN [Concomitant]
     Indication: PAIN
     Dosage: 800 MG, AS NEEDED, (EVERY 6 HOURS)
     Route: 048
  14. KENALOG [Concomitant]
     Active Substance: TRIAMCINOLONE ACETONIDE
     Dosage: USED AS DIRECTED

REACTIONS (11)
  - Memory impairment [Unknown]
  - Suicidal ideation [Unknown]
  - Paranoia [Unknown]
  - Generalised tonic-clonic seizure [Unknown]
  - Depression [Unknown]
  - Anxiety [Unknown]
  - Agoraphobia [Unknown]
  - Seizure [Unknown]
  - Unresponsive to stimuli [Unknown]
  - Staring [Unknown]
  - Panic attack [Unknown]
